FAERS Safety Report 19458675 (Version 1)
Quarter: 2021Q2

REPORT INFORMATION
  Report Type: Spontaneous
  Country: GB (occurrence: GB)
  Receive Date: 20210624
  Receipt Date: 20210624
  Transmission Date: 20210717
  Serious: Yes (Other)
  Sender: FDA-Public Use
  Company Number: GB-MYLANLABS-2021M1036694

PATIENT
  Age: 28 Year
  Sex: Female
  Weight: 122 kg

DRUGS (9)
  1. ARIPIPRAZOLE. [Concomitant]
     Active Substance: ARIPIPRAZOLE
     Indication: ILL-DEFINED DISORDER
     Dosage: 1 DOSAGE FORM, QD (TAKE ONE DAILY)
     Dates: start: 20200504
  2. NITROFURANTOIN. [Concomitant]
     Active Substance: NITROFURANTOIN
     Indication: ILL-DEFINED DISORDER
     Dosage: 1 DOSAGE FORM, BID (TAKE ONE TWICE DAILY)
     Dates: start: 20210604, end: 20210607
  3. YACELLA [Concomitant]
     Indication: ILL-DEFINED DISORDER
     Dosage: 1 DOSAGE FORM, PRN (TAKE ONE AS DIRECTED)
     Dates: start: 20200504
  4. METFORMIN [Concomitant]
     Active Substance: METFORMIN HYDROCHLORIDE
     Indication: HIRSUTISM
     Dosage: 1 DOSAGE FORM, QD (TAKE ONE TABLET DAILY FOR HIRSUTISM AS ADVISED)
     Dates: start: 20210305
  5. SERTRALINE [Concomitant]
     Active Substance: SERTRALINE HYDROCHLORIDE
     Indication: ILL-DEFINED DISORDER
     Dosage: 1 DOSAGE FORM, BID (1 TO BE TAKEN TWICE DAILY)
     Dates: start: 20200205
  6. CHLORPHENAMINE [Concomitant]
     Active Substance: CHLORPHENIRAMINE MALEATE
     Indication: ILL-DEFINED DISORDER
     Dosage: (ONE TABLET (4MG) IMMEDIATELY)
     Dates: start: 20210607, end: 20210610
  7. NITROFURANTOIN. [Suspect]
     Active Substance: NITROFURANTOIN
     Indication: ILL-DEFINED DISORDER
     Dosage: UNK
     Dates: start: 20210607
  8. FEXOFENADINE [Concomitant]
     Active Substance: FEXOFENADINE HYDROCHLORIDE
     Indication: ILL-DEFINED DISORDER
     Dosage: 1 DOSAGE FORM, QD (TAKE ONE DAILY)
     Dates: start: 20210607
  9. TRAMADOL. [Concomitant]
     Active Substance: TRAMADOL
     Indication: ILL-DEFINED DISORDER
     Dosage: UNK (1?2 CAPSULES UP TO FOUR TIMES A DAY AS REQUIRED)
     Dates: start: 20200826

REACTIONS (1)
  - Swelling face [Recovered/Resolved]

NARRATIVE: CASE EVENT DATE: 20210617
